FAERS Safety Report 20631546 (Version 2)
Quarter: 2022Q1

REPORT INFORMATION
  Report Type: Spontaneous
  Country: CN (occurrence: CN)
  Receive Date: 20220324
  Receipt Date: 20220330
  Transmission Date: 20220423
  Serious: Yes (Life-Threatening, Hospitalization)
  Sender: FDA-Public Use
  Company Number: CN-BAYER-2022A042194

PATIENT
  Age: 65 Year
  Sex: Female

DRUGS (1)
  1. GADOBUTROL [Suspect]
     Active Substance: GADOBUTROL
     Indication: Magnetic resonance imaging
     Dosage: 7.5 ML, ONCE
     Route: 042
     Dates: start: 20220321, end: 20220321

REACTIONS (3)
  - Altered state of consciousness [None]
  - Blood pressure decreased [None]
  - Shock [Recovered/Resolved]

NARRATIVE: CASE EVENT DATE: 20220321
